FAERS Safety Report 9911581 (Version 2)
Quarter: 2014Q2

REPORT INFORMATION
  Report Type: Spontaneous
  Country: US (occurrence: US)
  Receive Date: 20140219
  Receipt Date: 20140408
  Transmission Date: 20141212
  Serious: Yes (Other)
  Sender: FDA-Public Use
  Company Number: PHEH2014US003223

PATIENT
  Sex: Female

DRUGS (2)
  1. EXELON PATCH [Suspect]
     Dosage: 4.6 MG/DAY
     Route: 062
  2. PRAVASTATIN [Concomitant]
     Dosage: UNK UKN, UNK

REACTIONS (3)
  - Immune thrombocytopenic purpura [Unknown]
  - General physical health deterioration [Unknown]
  - Personality change [Unknown]
